FAERS Safety Report 6700126-3 (Version None)
Quarter: 2010Q2

REPORT INFORMATION
  Report Type: 
  Country: None (occurrence: None)
  Receive Date: 20100427
  Receipt Date: 20100427
  Transmission Date: 20101027
  Serious: Yes (Other)
  Sender: FDA-Public Use
  Company Number: None

PATIENT
  Age: 65 Year
  Sex: Female
  Weight: 89.8122 kg

DRUGS (1)
  1. CLARAVIS [Suspect]
     Indication: ROSACEA
     Dosage: 10MG ONCE DAILY
     Dates: start: 20100402, end: 20100408

REACTIONS (5)
  - ARTHROPOD BITE [None]
  - DIARRHOEA [None]
  - DYSURIA [None]
  - FLATULENCE [None]
  - RASH ERYTHEMATOUS [None]
